FAERS Safety Report 11253866 (Version 1)
Quarter: 2015Q3

REPORT INFORMATION
  Report Type: Spontaneous
  Country: GB (occurrence: GB)
  Receive Date: 20150709
  Receipt Date: 20150709
  Transmission Date: 20151125
  Serious: Yes (Other)
  Sender: FDA-Public Use
  Company Number: GB-WATSON-2015-13996

PATIENT
  Age: 58 Year
  Sex: Male

DRUGS (1)
  1. SIMVASTATIN. [Suspect]
     Active Substance: SIMVASTATIN
     Indication: BLOOD CHOLESTEROL INCREASED
     Dosage: 1 DF, QPM
     Route: 048

REACTIONS (5)
  - Malaise [Recovered/Resolved]
  - Erectile dysfunction [Recovering/Resolving]
  - Arthralgia [Recovering/Resolving]
  - Loss of consciousness [Recovered/Resolved]
  - Neck pain [Recovering/Resolving]
